FAERS Safety Report 21271521 (Version 2)
Quarter: 2022Q3

REPORT INFORMATION
  Report Type: Spontaneous
  Country: CN (occurrence: CN)
  Receive Date: 20220830
  Receipt Date: 20220906
  Transmission Date: 20221027
  Serious: Yes (Death, Other)
  Sender: FDA-Public Use
  Company Number: CN-PFIZER INC-PV202200050511

PATIENT
  Sex: Male

DRUGS (1)
  1. AVIBACTAM SODIUM\CEFTAZIDIME [Suspect]
     Active Substance: AVIBACTAM SODIUM\CEFTAZIDIME
     Indication: Leukaemia
     Dosage: 3 DF, DAILY
     Route: 042
     Dates: start: 202207, end: 202207

REACTIONS (3)
  - Leukaemia recurrent [Fatal]
  - Drug ineffective for unapproved indication [Fatal]
  - Off label use [Unknown]
